FAERS Safety Report 6412932-3 (Version None)
Quarter: 2009Q4

REPORT INFORMATION
  Report Type: 
  Country: None (occurrence: None)
  Receive Date: 20091023
  Receipt Date: 20091012
  Transmission Date: 20100525
  Serious: Yes (Other)
  Sender: FDA-Public Use
  Company Number: TR-WATSON-2009-08547

PATIENT
  Age: 32 Year
  Sex: Male

DRUGS (1)
  1. OXYTROL [Suspect]
     Indication: ALCOHOLISM
     Dosage: UNK

REACTIONS (7)
  - AGGRESSION [None]
  - AGITATION [None]
  - CHILLS [None]
  - DEPENDENCE [None]
  - INSOMNIA [None]
  - IRRITABILITY [None]
  - WITHDRAWAL SYNDROME [None]
